FAERS Safety Report 8469319-1 (Version None)
Quarter: 2012Q2

REPORT INFORMATION
  Report Type: 
  Country: None (occurrence: None)
  Receive Date: 20120626
  Receipt Date: 20120613
  Transmission Date: 20120825
  Serious: Yes (Other)
  Sender: FDA-Public Use
  Company Number: JP-SANOFI-AVENTIS-2012SA043450

PATIENT
  Age: 51 Year
  Sex: Female

DRUGS (2)
  1. DOCETAXEL [Suspect]
     Indication: UTERINE CANCER
     Route: 065
  2. GEMCITABINE [Suspect]
     Indication: UTERINE CANCER
     Dosage: TOTAL DOSE: 11,700 MG, NUMBER OF ADMINISTRATION: 8
     Route: 065

REACTIONS (5)
  - PYREXIA [None]
  - TRAUMATIC LUNG INJURY [None]
  - DYSPNOEA [None]
  - CELL MARKER INCREASED [None]
  - SURFACTANT PROTEIN INCREASED [None]
